FAERS Safety Report 19221717 (Version 2)
Quarter: 2022Q1

REPORT INFORMATION
  Report Type: Spontaneous
  Country: US (occurrence: US)
  Receive Date: 20210506
  Receipt Date: 20220106
  Transmission Date: 20220424
  Serious: No
  Sender: FDA-Public Use
  Company Number: US-GLENMARK PHARMACEUTICALS-2021GMK052711

PATIENT

DRUGS (1)
  1. CLOBETASOL PROPIONATE [Suspect]
     Active Substance: CLOBETASOL PROPIONATE
     Indication: Pruritus
     Dosage: UNK UNK, PRN AS NEEDED USUALLY ONCE EVERY 7 TO 10 DAYS AS THE AVERAGE
     Route: 061
     Dates: start: 2018

REACTIONS (5)
  - Inappropriate schedule of product administration [Unknown]
  - Product dispensing error [Unknown]
  - Expired product administered [Unknown]
  - Product packaging issue [Unknown]
  - Product physical consistency issue [Unknown]
